FAERS Safety Report 4614148-X (Version None)
Quarter: 2005Q1

REPORT INFORMATION
  Report Type: 
  Country: None (occurrence: None)
  Receive Date: 20050316
  Receipt Date: 20050301
  Transmission Date: 20050727
  Serious: Yes (Hospitalization)
  Sender: FDA-Public Use
  Company Number: SUSI-2005-00187

PATIENT
  Age: 23 Year
  Sex: Male

DRUGS (3)
  1. PENTASA [Suspect]
     Indication: CROHN'S DISEASE
     Dosage: 750 MG, 3X/DAY; TID, ORAL
     Route: 048
     Dates: start: 20041209, end: 20050117
  2. PENTASA [Suspect]
     Indication: CROHN'S DISEASE
     Dosage: 750 MG, 3X/DAY; TID, ORAL
     Route: 048
     Dates: start: 20041101
  3. MERCAPTOPURINE [Suspect]
     Indication: CROHN'S DISEASE
     Dosage: 30 MG, ORAL
     Route: 048
     Dates: start: 20041225, end: 20050117

REACTIONS (5)
  - CROHN'S DISEASE [None]
  - DISEASE RECURRENCE [None]
  - HAEMOGLOBIN DECREASED [None]
  - LEUKOPENIA [None]
  - PLATELET COUNT DECREASED [None]
